FAERS Safety Report 17930705 (Version 1)
Quarter: 2020Q2

REPORT INFORMATION
  Report Type: Spontaneous
  Country: CA (occurrence: CA)
  Receive Date: 20200623
  Receipt Date: 20200623
  Transmission Date: 20200714
  Serious: Yes (Life-Threatening, Hospitalization)
  Sender: FDA-Public Use
  Company Number: CA-ROCHE-2627334

PATIENT
  Age: 11 Year
  Sex: Male
  Weight: 46 kg

DRUGS (21)
  1. VALCYTE [Suspect]
     Active Substance: VALGANCICLOVIR HYDROCHLORIDE
     Indication: PRODUCT USED FOR UNKNOWN INDICATION
     Route: 048
  2. PENTAMIDINE ISETHIONATE. [Concomitant]
     Active Substance: PENTAMIDINE ISETHIONATE
  3. LANSOPRAZOLE. [Concomitant]
     Active Substance: LANSOPRAZOLE
  4. ACETAMINOPHEN. [Concomitant]
     Active Substance: ACETAMINOPHEN
  5. HYDROCORTISONE. [Concomitant]
     Active Substance: HYDROCORTISONE
  6. DIPHENHYDRAMINE. [Concomitant]
     Active Substance: DIPHENHYDRAMINE
  7. PIPERACILLIN AND TAZOBACTAM [Concomitant]
     Active Substance: PIPERACILLIN SODIUM\TAZOBACTAM SODIUM
  8. CLONIDINE. [Concomitant]
     Active Substance: CLONIDINE
  9. BUDESONIDE. [Concomitant]
     Active Substance: BUDESONIDE
  10. DIMENHYDRINATE. [Concomitant]
     Active Substance: DIMENHYDRINATE
  11. AMLODIPINE [Concomitant]
     Active Substance: AMLODIPINE BESYLATE
  12. VORICONAZOLE. [Concomitant]
     Active Substance: VORICONAZOLE
  13. VANCOMYCIN [Concomitant]
     Active Substance: VANCOMYCIN
  14. RELENZA [Concomitant]
     Active Substance: ZANAMIVIR
  15. MORPHINE [Concomitant]
     Active Substance: MORPHINE
  16. INSULIN [Concomitant]
     Active Substance: INSULIN NOS
  17. URSODEOXYCHOLIC ACID [Concomitant]
     Active Substance: URSODIOL
  18. HEPARIN CALCIUM [Concomitant]
     Active Substance: HEPARIN CALCIUM
  19. MAGNESIUM [Concomitant]
     Active Substance: MAGNESIUM
  20. LEVOFLOXACIN. [Concomitant]
     Active Substance: LEVOFLOXACIN
  21. CEFOTAXIME [Concomitant]
     Active Substance: CEFOTAXIME SODIUM

REACTIONS (2)
  - Aplastic anaemia [Unknown]
  - Platelet transfusion [Unknown]
